FAERS Safety Report 18540350 (Version 9)
Quarter: 2021Q2

REPORT INFORMATION
  Report Type: Spontaneous
  Country: DE (occurrence: DE)
  Receive Date: 20201124
  Receipt Date: 20210608
  Transmission Date: 20210717
  Serious: Yes (Other)
  Sender: FDA-Public Use
  Company Number: NVSC2020DE307654

PATIENT
  Age: 53 Year
  Sex: Female
  Weight: 62 kg

DRUGS (11)
  1. PANTOPRAZOLE [Suspect]
     Active Substance: PANTOPRAZOLE
     Indication: PRODUCT USED FOR UNKNOWN INDICATION
     Dosage: 40 MG, PRN
     Route: 065
  2. SALBUTAMOL [Concomitant]
     Active Substance: ALBUTEROL
     Indication: PRODUCT USED FOR UNKNOWN INDICATION
     Dosage: UNK
     Route: 065
  3. DOMPERIDONE [Concomitant]
     Active Substance: DOMPERIDONE
     Indication: PRODUCT USED FOR UNKNOWN INDICATION
     Dosage: UNK
     Route: 065
  4. VOLON A [Concomitant]
     Dosage: INTO SPINAL FLUID
     Route: 065
  5. DEKRISTOL [Concomitant]
     Active Substance: CHOLECALCIFEROL
     Indication: PRODUCT USED FOR UNKNOWN INDICATION
     Dosage: 20000 IU, QW
     Route: 065
  6. CORTISONE [Suspect]
     Active Substance: CORTISONE
     Indication: PRODUCT USED FOR UNKNOWN INDICATION
     Dosage: UNK (ALTERNATIVE TO VOLON A)
     Route: 065
     Dates: end: 20200813
  7. NOVALGIN [Concomitant]
     Indication: PRODUCT USED FOR UNKNOWN INDICATION
     Dosage: UNK
     Route: 065
  8. IBUPROFEN. [Concomitant]
     Active Substance: IBUPROFEN
     Indication: PRODUCT USED FOR UNKNOWN INDICATION
     Dosage: UNK
     Route: 065
  9. VOLON A [Concomitant]
     Dosage: INTO SPINAL FLUID
     Route: 065
  10. VOLON A [Concomitant]
     Indication: PRODUCT USED FOR UNKNOWN INDICATION
     Dosage: 100 MG, Q3MO (INTO SPINAL FLUID)
     Route: 065
     Dates: start: 20200409
  11. CANNABIS SATIVA [Concomitant]
     Active Substance: CANNABIS SATIVA FLOWERING TOP
     Indication: PRODUCT USED FOR UNKNOWN INDICATION
     Dosage: UNK (SEVERAL TIMES PER DAY AND IN THE NIGHT)
     Route: 065

REACTIONS (34)
  - Dry skin [Not Recovered/Not Resolved]
  - Fluid retention [Not Recovered/Not Resolved]
  - Diarrhoea [Recovered/Resolved]
  - Gait disturbance [Not Recovered/Not Resolved]
  - Gastritis erosive [Recovered/Resolved]
  - Alopecia [Not Recovered/Not Resolved]
  - Alopecia [Recovered/Resolved]
  - Cataract [Not Recovered/Not Resolved]
  - Urinary tract infection bacterial [Recovered/Resolved]
  - Muscle spasticity [Recovered/Resolved]
  - Initial insomnia [Recovered/Resolved]
  - Mobility decreased [Recovered/Resolved]
  - B-lymphocyte count decreased [Not Recovered/Not Resolved]
  - Endometrial thickening [Not Recovered/Not Resolved]
  - Cushing^s syndrome [Not Recovered/Not Resolved]
  - Paraesthesia [Recovered/Resolved]
  - Blood cholesterol increased [Recovered/Resolved]
  - Irritability [Not Recovered/Not Resolved]
  - Arthralgia [Recovered/Resolved]
  - Body fat disorder [Not Recovered/Not Resolved]
  - Rash [Recovered/Resolved]
  - Weight increased [Not Recovered/Not Resolved]
  - Dizziness [Recovered/Resolved]
  - Injection site warmth [Recovered/Resolved]
  - Pain in extremity [Recovered/Resolved]
  - Bone pain [Recovered/Resolved]
  - Insomnia [Recovered/Resolved]
  - Asthenia [Recovered/Resolved]
  - Paraesthesia [Recovered/Resolved]
  - Bone density increased [Not Recovered/Not Resolved]
  - Muscular weakness [Recovered/Resolved]
  - Periorbital swelling [Not Recovered/Not Resolved]
  - Calcinosis [Recovered/Resolved]
  - Injection site erythema [Recovered/Resolved]

NARRATIVE: CASE EVENT DATE: 2019
